FAERS Safety Report 6269634-6 (Version None)
Quarter: 2009Q3

REPORT INFORMATION
  Report Type: 
  Country: None (occurrence: None)
  Receive Date: 20090714
  Receipt Date: 20090706
  Transmission Date: 20100115
  Serious: No
  Sender: FDA-Public Use
  Company Number: LIT-09-0007

PATIENT
  Age: 55 Year
  Sex: Female

DRUGS (3)
  1. AMANTADINE HCL [Suspect]
     Indication: MULTIPLE SCLEROSIS
     Dosage: 100MG TWICE DAILY 047
  2. AMANTADINE HCL [Suspect]
     Indication: MULTIPLE SCLEROSIS
     Dosage: 100MG TWICE DAILY 047
  3. AMANTADINE HCL [Suspect]
     Indication: MULTIPLE SCLEROSIS
     Dosage: 100MG TWICE DAILY 047

REACTIONS (1)
  - CORNEAL OEDEMA [None]
